FAERS Safety Report 6786625-7 (Version None)
Quarter: 2010Q2

REPORT INFORMATION
  Report Type: 
  Country: None (occurrence: None)
  Receive Date: 20100623
  Receipt Date: 20100616
  Transmission Date: 20101027
  Serious: Yes (Hospitalization)
  Sender: FDA-Public Use
  Company Number: JP-BRISTOL-MYERS SQUIBB COMPANY-14947931

PATIENT
  Age: 67 Year
  Sex: Male
  Weight: 79 kg

DRUGS (7)
  1. ERBITUX [Suspect]
     Indication: COLON CANCER
     Dosage: 13JAN09:720MG 21JAN09-5AUG09(18TH INF):450 MG 26AUG09:REDUCED TO 200MG/M2(370MG 1/1 WK)
     Route: 042
     Dates: start: 20090113
  2. IRINOTECAN HCL [Concomitant]
     Indication: COLON CANCER
     Route: 042
     Dates: start: 20100113, end: 20100113
  3. FLUOROURACIL [Concomitant]
     Indication: COLON CANCER
     Dosage: 13JAN10:IV BOLUS 13JAN10:IV DRIP; 3000MG, GIVEN UNTIL 15JAN2009
     Route: 040
     Dates: start: 20090113, end: 20090113
  4. LEUCOVORIN CALCIUM [Concomitant]
     Indication: COLON CANCER
     Dosage: ALSO TOOK 3000 MG ON 13JAN09
     Route: 042
     Dates: start: 20100113, end: 20100113
  5. DIPHENHYDRAMINE [Concomitant]
     Indication: PREMEDICATION
     Route: 048
     Dates: start: 20100113
  6. DEXAMETHASONE ACETATE [Concomitant]
     Indication: PREMEDICATION
     Route: 048
     Dates: start: 20100113
  7. GRANISETRON [Concomitant]
     Route: 042
     Dates: start: 20100113

REACTIONS (3)
  - ACNE [None]
  - DIARRHOEA [None]
  - ILEUS PARALYTIC [None]
